FAERS Safety Report 5688738-X (Version None)
Quarter: 2008Q1

REPORT INFORMATION
  Report Type: 
  Country: None (occurrence: None)
  Receive Date: 20080331
  Receipt Date: 20080317
  Transmission Date: 20080703
  Serious: Yes (Other)
  Sender: FDA-Public Use
  Company Number: JP-MERCK-0803USA02722

PATIENT
  Age: 75 Year
  Sex: Male

DRUGS (3)
  1. TIMOPTIC-XE [Suspect]
     Indication: INTRAOCULAR PRESSURE INCREASED
     Route: 047
     Dates: end: 20070524
  2. TRUSOPT [Suspect]
     Indication: INTRAOCULAR PRESSURE INCREASED
     Route: 047
     Dates: start: 20070413, end: 20070522
  3. XALATAN [Suspect]
     Indication: INTRAOCULAR PRESSURE INCREASED
     Route: 047
     Dates: end: 20070524

REACTIONS (3)
  - CORNEAL EROSION [None]
  - IRIS NEOVASCULARISATION [None]
  - IRITIS [None]
